FAERS Safety Report 14425539 (Version 1)
Quarter: 2018Q1

REPORT INFORMATION
  Report Type: Spontaneous
  Country: US (occurrence: US)
  Receive Date: 20180122
  Receipt Date: 20180122
  Transmission Date: 20180509
  Serious: No
  Sender: FDA-Public Use
  Company Number: None

PATIENT
  Age: 5 Year
  Sex: Female
  Weight: 17.1 kg

DRUGS (1)
  1. OSELTAMIVIR [Suspect]
     Active Substance: OSELTAMIVIR
     Indication: INFLUENZA A VIRUS TEST POSITIVE
     Dosage: ?          QUANTITY:7.5 ML;?
     Route: 048
     Dates: start: 20180114, end: 20180115

REACTIONS (2)
  - Vomiting [None]
  - Hallucination, visual [None]

NARRATIVE: CASE EVENT DATE: 20180114
